FAERS Safety Report 7843072 (Version 5)
Quarter: 2013Q4

REPORT INFORMATION
  Report Type: Spontaneous
  Country: US (occurrence: US)
  Receive Date: 20110307
  Receipt Date: 20131206
  Transmission Date: 20140711
  Serious: Yes (Other)
  Sender: FDA-Public Use
  Company Number: US-BAYER-2011-020334

PATIENT
  Age: 26 Year
  Sex: Female
  Weight: 73 kg

DRUGS (8)
  1. YAZ [Suspect]
     Indication: CONTRACEPTION
     Dosage: UNK
     Route: 048
     Dates: start: 200808, end: 200902
  2. ADDERALL [Concomitant]
     Indication: ATTENTION DEFICIT/HYPERACTIVITY DISORDER
  3. CELEXA [Concomitant]
     Indication: DEPRESSION
  4. RISPERDAL [Concomitant]
     Indication: DEPRESSION
  5. CYMBALTA [Concomitant]
  6. RESPIRADOL [Concomitant]
  7. ZANTAC [Concomitant]
  8. ELIXIR FOR SPASM [Concomitant]

REACTIONS (8)
  - Gallbladder non-functioning [None]
  - Post cholecystectomy syndrome [None]
  - Cholecystitis chronic [None]
  - Anxiety [None]
  - Psychological trauma [None]
  - Pain [None]
  - Vomiting [None]
  - Abdominal pain [None]
